FAERS Safety Report 18037245 (Version 2)
Quarter: 2020Q4

REPORT INFORMATION
  Report Type: Spontaneous
  Country: US (occurrence: US)
  Receive Date: 20200717
  Receipt Date: 20201023
  Transmission Date: 20210113
  Serious: No
  Sender: FDA-Public Use
  Company Number: US-LUPIN PHARMACEUTICALS INC.-2020-03124

PATIENT
  Sex: Female
  Weight: 73.47 kg

DRUGS (2)
  1. AMLODIPINE [Suspect]
     Active Substance: AMLODIPINE BESYLATE
     Dosage: 10 MILLIGRAM, QD (NEW FORM)
     Route: 048
  2. AMLODIPINE [Suspect]
     Active Substance: AMLODIPINE BESYLATE
     Indication: HYPERTENSION
     Dosage: 10 MILLIGRAM, QD (OLD FORM)
     Route: 048

REACTIONS (2)
  - Cough [Not Recovered/Not Resolved]
  - Headache [Recovered/Resolved]
